FAERS Safety Report 25507557 (Version 1)
Quarter: 2025Q3

REPORT INFORMATION
  Report Type: Spontaneous
  Country: US (occurrence: US)
  Receive Date: 20250703
  Receipt Date: 20250703
  Transmission Date: 20251020
  Serious: Yes (Hospitalization)
  Sender: INTERCEPT PHARMACEUTICALS
  Company Number: US-INTERCEPT-PM2025001358

PATIENT
  Age: 32 Year
  Sex: Female

DRUGS (3)
  1. OCALIVA [Suspect]
     Active Substance: OBETICHOLIC ACID
     Indication: Primary biliary cholangitis
     Dosage: UNK, QD
     Route: 048
     Dates: start: 202310
  2. OCALIVA [Suspect]
     Active Substance: OBETICHOLIC ACID
     Dosage: 5 MILLIGRAM, QD
     Route: 048
     Dates: end: 202506
  3. URSODIOL [Concomitant]
     Active Substance: URSODIOL
     Dosage: 1250 MILLIGRAM, QD
     Dates: start: 2022

REACTIONS (3)
  - Atrial flutter [Unknown]
  - Insurance issue [Not Recovered/Not Resolved]
  - Therapy cessation [Not Recovered/Not Resolved]

NARRATIVE: CASE EVENT DATE: 20250601
